FAERS Safety Report 4973390-9 (Version None)
Quarter: 2006Q2

REPORT INFORMATION
  Report Type: 
  Country: None (occurrence: None)
  Receive Date: 20060414
  Receipt Date: 20051027
  Transmission Date: 20061013
  Serious: Yes (Hospitalization)
  Sender: FDA-Public Use
  Company Number: US-MERCK-0510USA09477

PATIENT
  Age: 51 Year
  Sex: Female
  Weight: 86 kg

DRUGS (6)
  1. VIOXX [Suspect]
     Indication: ARTHRITIS
     Route: 048
     Dates: start: 19990101
  2. VIOXX [Suspect]
     Route: 048
     Dates: start: 19990101
  3. LASIX [Concomitant]
     Route: 065
  4. PREDNISONE [Concomitant]
     Route: 065
  5. LOTENSIN [Concomitant]
     Route: 065
  6. ZANTAC [Concomitant]
     Route: 065

REACTIONS (10)
  - ANGINA UNSTABLE [None]
  - BACK DISORDER [None]
  - CARDIOMEGALY [None]
  - CORONARY ARTERY OCCLUSION [None]
  - GASTRITIS EROSIVE [None]
  - MUSCULOSKELETAL CHEST PAIN [None]
  - MYOCARDIAL ISCHAEMIA [None]
  - OEDEMA PERIPHERAL [None]
  - SURGERY [None]
  - VAGINAL HAEMORRHAGE [None]
